FAERS Safety Report 8297362-4 (Version None)
Quarter: 2012Q2

REPORT INFORMATION
  Report Type: 
  Country: None (occurrence: None)
  Receive Date: 20120419
  Receipt Date: 20120416
  Transmission Date: 20120825
  Serious: Yes (Other)
  Sender: FDA-Public Use
  Company Number: US-SHIRE-ALL1-2012-01923

PATIENT
  Age: 62 Year
  Sex: Female
  Weight: 58.957 kg

DRUGS (3)
  1. LIALDA [Suspect]
     Indication: COLITIS ULCERATIVE
     Dosage: 4.8 G, 1X/DAY:QD(4-1.2G TABLETS DAILY)
     Route: 048
     Dates: start: 20110910
  2. LIALDA [Suspect]
     Dosage: 2.4 UNK, 1X/DAY:QD (2-1.2G TABLETS DAILY)
     Route: 048
  3. COUMADIN [Concomitant]
     Indication: PRODUCT USED FOR UNKNOWN INDICATION
     Dosage: UNK, UNKNOWN
     Route: 065

REACTIONS (4)
  - ALOPECIA [None]
  - ARRHYTHMIA [None]
  - NOCTURIA [None]
  - CONDITION AGGRAVATED [None]
